FAERS Safety Report 6130297-1 (Version None)
Quarter: 2009Q1

REPORT INFORMATION
  Report Type: 
  Country: None (occurrence: None)
  Receive Date: 20090324
  Receipt Date: 20090312
  Transmission Date: 20090719
  Serious: Yes (Other)
  Sender: FDA-Public Use
  Company Number: FI-PFIZER INC-2009182915

PATIENT

DRUGS (1)
  1. LYRICA [Suspect]
     Route: 048
     Dates: start: 20090301, end: 20090309

REACTIONS (4)
  - ADVERSE EVENT [None]
  - EYELID OEDEMA [None]
  - GENERALISED OEDEMA [None]
  - PARAESTHESIA [None]
